FAERS Safety Report 9254704 (Version 1)
Quarter: 2013Q1

REPORT INFORMATION
  Report Type: Spontaneous
  Country: US (occurrence: None)
  Receive Date: 20121203
  Receipt Date: 20121203
  Transmission Date: 20140127
  Serious: Yes (Other)
  Sender: FDA-Public Use
  Company Number: 2011SP054461

PATIENT
  Age: 18 Year
  Sex: Female
  Weight: 65.8 kg

DRUGS (1)
  1. NUVARING [Suspect]
     Indication: CONTRACEPTION
     Dates: start: 20091203, end: 20100102

REACTIONS (8)
  - Pulmonary embolism [None]
  - Pleuritic pain [None]
  - Post-tussive vomiting [None]
  - Diarrhoea [None]
  - Bronchitis [None]
  - Pleural effusion [None]
  - Upper respiratory tract infection [None]
  - Muscle strain [None]
